FAERS Safety Report 6609735-3 (Version None)
Quarter: 2010Q1

REPORT INFORMATION
  Report Type: 
  Country: None (occurrence: None)
  Receive Date: 20100216
  Receipt Date: 20091106
  Transmission Date: 20100710
  Serious: Yes (Other)
  Sender: FDA-Public Use
  Company Number: MC200900403

PATIENT
  Age: 37 Year
  Sex: Male
  Weight: 66 kg

DRUGS (4)
  1. ANGIOMAX [Suspect]
     Indication: ARTERIOGRAM CORONARY
     Dosage: 0.75 MG/KG (10 ML), BOLUS, INTRAVENOUS; SEE IMAGE
     Route: 042
     Dates: start: 20091102, end: 20091102
  2. ANGIOMAX [Suspect]
     Indication: ARTERIOGRAM CORONARY
     Dosage: 0.75 MG/KG (10 ML), BOLUS, INTRAVENOUS; SEE IMAGE
     Route: 042
     Dates: start: 20091102, end: 20091102
  3. PLAVIX [Concomitant]
  4. ASPIRIN [Concomitant]

REACTIONS (4)
  - COAGULATION TIME ABNORMAL [None]
  - CORONARY ARTERY THROMBOSIS [None]
  - DRUG ADMINISTRATION ERROR [None]
  - DRUG INEFFECTIVE [None]
